FAERS Safety Report 12252237 (Version 1)
Quarter: 2016Q2

REPORT INFORMATION
  Report Type: Spontaneous
  Country: US (occurrence: None)
  Receive Date: 20160408
  Receipt Date: 20160408
  Transmission Date: 20160815
  Serious: Yes (Life-Threatening)
  Sender: FDA-Public Use
  Company Number: None

PATIENT
  Age: 61 Year
  Sex: Male
  Weight: 133 kg

DRUGS (1)
  1. OCTREOTIDE. [Suspect]
     Active Substance: OCTREOTIDE
     Indication: CARCINOID CRISIS
     Route: 041
     Dates: start: 20160326, end: 20160330

REACTIONS (4)
  - Cardiac arrest [None]
  - Hypoxia [None]
  - Blood sodium decreased [None]
  - Bradycardia [None]

NARRATIVE: CASE EVENT DATE: 20160330
